FAERS Safety Report 21315318 (Version 1)
Quarter: 2022Q3

REPORT INFORMATION
  Report Type: Spontaneous
  Country: US (occurrence: None)
  Receive Date: 20220909
  Receipt Date: 20220909
  Transmission Date: 20221027
  Serious: No
  Sender: FDA-Public Use
  Company Number: US-ARIS GLOBAL-202111-2107

PATIENT
  Sex: Female

DRUGS (13)
  1. OXERVATE [Suspect]
     Active Substance: CENEGERMIN-BKBJ
     Indication: Neurotrophic keratopathy
     Route: 047
     Dates: start: 20211109
  2. GLUCOSAMINE-CHONDROITIN-MSM [Concomitant]
  3. VITAMIN B COMPLEX [Concomitant]
     Active Substance: CYANOCOBALAMIN\DEXPANTHENOL\NIACINAMIDE\PYRIDOXINE HYDROCHLORIDE\RIBOFLAVIN 5^-PHOSPHATE SODIUM\THIA
  4. MAGNESIUM [Concomitant]
     Active Substance: MAGNESIUM
  5. CALCIUM [Concomitant]
     Active Substance: CALCIUM
     Dosage: 500 (1250) MG
  6. VITAMIN D3 [Concomitant]
     Active Substance: CHOLECALCIFEROL
  7. OMEPRAZOLE [Concomitant]
     Active Substance: OMEPRAZOLE
  8. AZATHIOPRINE [Concomitant]
     Active Substance: AZATHIOPRINE
  9. REFRESH OPTIVE [Concomitant]
     Active Substance: CARBOXYMETHYLCELLULOSE SODIUM\GLYCERIN
     Dosage: 0.5%-0.9%
  10. ELIQUIS [Concomitant]
     Active Substance: APIXABAN
  11. PREGABALIN [Concomitant]
     Active Substance: PREGABALIN
  12. ALENDRONATE SODIUM [Concomitant]
     Active Substance: ALENDRONATE SODIUM
  13. SOTALOL [Concomitant]
     Active Substance: SOTALOL

REACTIONS (3)
  - Eye pain [Unknown]
  - Photophobia [Unknown]
  - Visual impairment [Unknown]
